FAERS Safety Report 21854852 (Version 1)
Quarter: 2023Q1

REPORT INFORMATION
  Report Type: Spontaneous
  Country: US (occurrence: None)
  Receive Date: 20230112
  Receipt Date: 20230112
  Transmission Date: 20230418
  Serious: Yes (Life-Threatening, Hospitalization)
  Sender: FDA-Public Use
  Company Number: None

PATIENT
  Age: 74 Year
  Sex: Male

DRUGS (2)
  1. CEFEPIME [Suspect]
     Active Substance: CEFEPIME HYDROCHLORIDE
     Indication: Surgery
     Dosage: FREQUENCY : TWICE A DAY;?
     Route: 042
     Dates: start: 20220826, end: 20220912
  2. MORPHINE [Suspect]
     Active Substance: MORPHINE
     Indication: Pain
     Dosage: FREQUENCY : TWICE A DAY;?
     Route: 048
     Dates: start: 20220829, end: 20220912

REACTIONS (3)
  - Delirium [None]
  - Therapy cessation [None]
  - Near death experience [None]

NARRATIVE: CASE EVENT DATE: 20220911
